FAERS Safety Report 26022319 (Version 1)
Quarter: 2025Q4

REPORT INFORMATION
  Report Type: Spontaneous
  Country: EU (occurrence: EU)
  Receive Date: 20251110
  Receipt Date: 20251110
  Transmission Date: 20260118
  Serious: Yes (Hospitalization, Other)
  Sender: FRESENIUS KABI
  Company Number: None

PATIENT
  Age: 71 Year
  Sex: Female

DRUGS (8)
  1. PEMETREXED [Suspect]
     Active Substance: PEMETREXED
     Indication: Lung adenocarcinoma stage IV
     Dosage: 690 MG IN 100 ML OF 0.9% SODIUM CHLORIDE
     Route: 042
     Dates: start: 20250711, end: 20250910
  2. KEYTRUDA [Suspect]
     Active Substance: PEMBROLIZUMAB
     Indication: Lung adenocarcinoma stage IV
     Dosage: FOA: CONCENTRATE FOR SOLUTION FOR INFUSION?92 MG OF PEMBROLIZUMAB IN 50 ML OF 0.9% SODIUM CHLORIDE
     Route: 042
     Dates: start: 20250822, end: 20250910
  3. CISPLATIN [Suspect]
     Active Substance: CISPLATIN
     Indication: Lung adenocarcinoma stage IV
     Dosage: 103 MG OF CISPLATIN IN 500 ML OF 0.9% SODIUM CHLORIDE
     Route: 042
     Dates: start: 20250711, end: 20250910
  4. OMEPRAZOLE CINFAMED 20 mg Gastro-resistant capsule, hard, 28 capsules [Concomitant]
     Indication: Product used for unknown indication
     Dosage: FOA: GASTRO-RESISTANT CAPSULE, HARD
     Route: 048
     Dates: start: 20250704
  5. HIBOR 5.000 UI ANTI-XA/0,2 ml solution injectable in prefilled syringe [Concomitant]
     Indication: Product used for unknown indication
     Route: 058
     Dates: start: 20250910
  6. FOLI-DOCE 400/2 mg tablets , 28 tablets [Concomitant]
     Indication: Product used for unknown indication
     Dosage: FOA: TABLET
     Route: 048
     Dates: start: 20250704
  7. FORTECORTIN 4 mg tablets, 30 tablets [Concomitant]
     Indication: Product used for unknown indication
     Dosage: FOA: TABLET?FORTECORTIN 4 MG, DAILY SCHEDULE 1-1-0
     Route: 048
     Dates: start: 20250609
  8. SEPTRIN FORTE 160 mg/800 mg tablets, 50 tablets [Concomitant]
     Indication: Product used for unknown indication
     Dosage: FOA: TABLET
     Route: 048
     Dates: start: 20250707

REACTIONS (1)
  - Toxic epidermal necrolysis [Recovering/Resolving]

NARRATIVE: CASE EVENT DATE: 20251004
